FAERS Safety Report 8572365-0 (Version None)
Quarter: 2012Q3

REPORT INFORMATION
  Report Type: 
  Country: None (occurrence: None)
  Receive Date: 20120806
  Receipt Date: 20120802
  Transmission Date: 20120928
  Serious: Yes (Other)
  Sender: FDA-Public Use
  Company Number: IT-ROCHE-1066341

PATIENT
  Sex: Female

DRUGS (2)
  1. AVASTIN [Suspect]
     Indication: COLON CANCER
     Route: 042
     Dates: start: 20090429, end: 20091216
  2. METOCLOPRAMIDE [Concomitant]
     Route: 042
     Dates: start: 20090430, end: 20091216

REACTIONS (1)
  - URTICARIA [None]
